FAERS Safety Report 5930172-9 (Version None)
Quarter: 2008Q4

REPORT INFORMATION
  Report Type: 
  Country: None (occurrence: None)
  Receive Date: 20081024
  Receipt Date: 20081014
  Transmission Date: 20090506
  Serious: Yes (Hospitalization)
  Sender: FDA-Public Use
  Company Number: FR-PFIZER INC-2008086916

PATIENT
  Age: 65 Year
  Sex: Female

DRUGS (2)
  1. REVATIO [Suspect]
     Indication: PULMONARY ARTERIAL HYPERTENSION
     Dates: start: 20080901
  2. EPOPROSTENOL SODIUM [Concomitant]

REACTIONS (1)
  - SKIN HYPERPIGMENTATION [None]
